FAERS Safety Report 6699176-5 (Version None)
Quarter: 2010Q2

REPORT INFORMATION
  Report Type: 
  Country: None (occurrence: None)
  Receive Date: 20100421
  Receipt Date: 20090616
  Transmission Date: 20101027
  Serious: Yes (Other)
  Sender: FDA-Public Use
  Company Number: 20090248

PATIENT
  Age: 39 Year
  Sex: Female
  Weight: 73.0291 kg

DRUGS (1)
  1. DEXFERRUM [Suspect]
     Indication: IRON DEFICIENCY ANAEMIA
     Dosage: TEST DOSE UNKNOWN INTRAVENOUS
     Route: 042
     Dates: start: 20090612, end: 20090612

REACTIONS (2)
  - ANAPHYLACTOID REACTION [None]
  - CHEST PAIN [None]
